FAERS Safety Report 13516668 (Version 1)
Quarter: 2017Q2

REPORT INFORMATION
  Report Type: Spontaneous
  Country: US (occurrence: US)
  Receive Date: 20170504
  Receipt Date: 20170504
  Transmission Date: 20170830
  Serious: Yes (Life-Threatening)
  Sender: FDA-Public Use
  Company Number: None

PATIENT
  Age: 41 Year
  Sex: Female
  Weight: 54 kg

DRUGS (1)
  1. COMPLETE ALLERGY 4 KIDS [Suspect]
     Active Substance: HOMEOPATHICS
     Indication: HYPERSENSITIVITY
     Dosage: ?          QUANTITY:3 TEASPOON(S);?
     Route: 048
     Dates: start: 20170504

REACTIONS (5)
  - Hypersensitivity [None]
  - Pharyngeal oedema [None]
  - Product quality issue [None]
  - Swollen tongue [None]
  - Product contamination [None]

NARRATIVE: CASE EVENT DATE: 20170504
